FAERS Safety Report 7265438-6 (Version None)
Quarter: 2011Q1

REPORT INFORMATION
  Report Type: 
  Country: None (occurrence: None)
  Receive Date: 20110131
  Receipt Date: 20110118
  Transmission Date: 20110831
  Serious: Yes (Other)
  Sender: FDA-Public Use
  Company Number: PHHY2011US02859

PATIENT
  Sex: Female

DRUGS (7)
  1. BACLOFEN [Concomitant]
     Dosage: 10 MG, DAILY
     Route: 048
  2. VITAMIN D [Concomitant]
     Dosage: UNK
     Route: 048
     Dates: start: 20000109, end: 20110109
  3. GILENYA [Suspect]
     Indication: MULTIPLE SCLEROSIS
     Dosage: 0.5 MG, QD
     Route: 048
     Dates: start: 20110111, end: 20110112
  4. ASCORBIC ACID [Concomitant]
     Dosage: UNK
     Route: 048
     Dates: start: 20100109, end: 20110109
  5. MULTI-VITAMIN [Concomitant]
     Dosage: UNK
     Route: 048
     Dates: start: 20100109, end: 20110109
  6. CALCIUM [Concomitant]
     Dosage: UNK
     Route: 048
     Dates: start: 20100109, end: 20110109
  7. LOVAZA [Concomitant]
     Dosage: UNK
     Route: 048
     Dates: start: 20100109, end: 20110109

REACTIONS (5)
  - ATRIOVENTRICULAR BLOCK SECOND DEGREE [None]
  - SINUS BRADYCARDIA [None]
  - BLOOD PRESSURE DECREASED [None]
  - CHEST PAIN [None]
  - VENTRICULAR EXTRASYSTOLES [None]
